FAERS Safety Report 17943801 (Version 1)
Quarter: 2020Q2

REPORT INFORMATION
  Report Type: Spontaneous
  Country: US (occurrence: US)
  Receive Date: 20200625
  Receipt Date: 20200625
  Transmission Date: 20200714
  Serious: Yes (Life-Threatening, Hospitalization, Other)
  Sender: FDA-Public Use
  Company Number: US-PFM-2020-15197

PATIENT
  Sex: Female
  Weight: 5.96 kg

DRUGS (2)
  1. HEMANGEOL [Suspect]
     Active Substance: PROPRANOLOL HYDROCHLORIDE
     Indication: BIRTH MARK
     Dosage: 3.7 ML, BID (2/DAY) WITH FEEDINGS AS DIRECTED
     Route: 048
     Dates: start: 20190506
  2. HEMANGEOL [Suspect]
     Active Substance: PROPRANOLOL HYDROCHLORIDE
     Indication: OFF LABEL USE

REACTIONS (5)
  - Cyanosis [Unknown]
  - Product use in unapproved indication [Unknown]
  - Off label use [Unknown]
  - Loss of consciousness [Unknown]
  - Product use issue [Unknown]
